FAERS Safety Report 4903031-8 (Version None)
Quarter: 2006Q1

REPORT INFORMATION
  Report Type: 
  Country: None (occurrence: None)
  Receive Date: 20060207
  Receipt Date: 20041029
  Transmission Date: 20060701
  Serious: Yes (Hospitalization)
  Sender: FDA-Public Use
  Company Number: US-MERCK-0411USA00118

PATIENT
  Age: 42 Year
  Sex: Female

DRUGS (2)
  1. VIOXX [Suspect]
     Indication: ARTHRALGIA
     Route: 048
     Dates: start: 20000211, end: 20030819
  2. COMBIVIR [Suspect]
     Route: 065

REACTIONS (7)
  - ARTERY DISSECTION [None]
  - CEREBELLAR INFARCTION [None]
  - COORDINATION ABNORMAL [None]
  - DYSMENORRHOEA [None]
  - DYSPAREUNIA [None]
  - ENDOMETRIOSIS [None]
  - PELVIC PAIN [None]
